FAERS Safety Report 24389136 (Version 1)
Quarter: 2024Q4

REPORT INFORMATION
  Report Type: Spontaneous
  Country: GB (occurrence: GB)
  Receive Date: 20241002
  Receipt Date: 20241002
  Transmission Date: 20250114
  Serious: Yes (Other)
  Sender: PFIZER
  Company Number: None

PATIENT
  Sex: Female

DRUGS (4)
  1. RIMEGEPANT [Suspect]
     Active Substance: RIMEGEPANT
     Indication: Migraine
  2. NORTRIPTYLINE [Concomitant]
     Active Substance: NORTRIPTYLINE
     Indication: Migraine
  3. PROGESTERONE [Concomitant]
     Active Substance: PROGESTERONE
     Indication: Migraine
  4. PROGESTERONE [Concomitant]
     Active Substance: PROGESTERONE
     Indication: Menstrual cycle management

REACTIONS (5)
  - Sleep paralysis [Not Recovered/Not Resolved]
  - Condition aggravated [Not Recovered/Not Resolved]
  - Sleep disorder [Not Recovered/Not Resolved]
  - Abnormal dreams [Not Recovered/Not Resolved]
  - Condition aggravated [Not Recovered/Not Resolved]
